FAERS Safety Report 14939810 (Version 1)
Quarter: 2018Q2

REPORT INFORMATION
  Report Type: Report from Study
  Country: US (occurrence: US)
  Receive Date: 20180525
  Receipt Date: 20180525
  Transmission Date: 20180711
  Serious: Yes (Death, Other)
  Sender: FDA-Public Use
  Company Number: US-JAZZ-2018-US-008136

PATIENT

DRUGS (1)
  1. ERWINAZE [Suspect]
     Active Substance: ASPARAGINASE ERWINIA CHRYSANTHEMI
     Indication: ACUTE BIPHENOTYPIC LEUKAEMIA
     Dosage: 25000 IU/M2
     Route: 030
     Dates: start: 201605

REACTIONS (1)
  - Death [Fatal]
